FAERS Safety Report 9580960 (Version 1)
Quarter: 2013Q4

REPORT INFORMATION
  Report Type: Spontaneous
  Country: US (occurrence: None)
  Receive Date: 20131001
  Receipt Date: 20131001
  Transmission Date: 20140711
  Serious: No
  Sender: FDA-Public Use
  Company Number: None

PATIENT
  Age: 51 Year
  Sex: 0

DRUGS (2)
  1. NICODERM CQ [Suspect]
     Indication: SMOKING CESSATION THERAPY
     Dosage: ONCE DAILY APPLIED TO A SURFACE USUALLY THE SKIN
  2. NICORRETTE GUM [Suspect]
     Indication: SMOKING CESSATION THERAPY
     Dosage: 1 PIECE AS NEEDED TAKEN BY MOUTH

REACTIONS (5)
  - Drug hypersensitivity [None]
  - Hiccups [None]
  - Nausea [None]
  - Toothache [None]
  - Dyspepsia [None]
